FAERS Safety Report 16893804 (Version 1)
Quarter: 2019Q4

REPORT INFORMATION
  Report Type: Spontaneous
  Country: CA (occurrence: CA)
  Receive Date: 20191008
  Receipt Date: 20191008
  Transmission Date: 20200122
  Serious: Yes (Other)
  Sender: FDA-Public Use
  Company Number: CA-PFIZER INC-2019427640

PATIENT
  Sex: Male

DRUGS (15)
  1. ACETYLSALICYLIC ACID [Concomitant]
     Active Substance: ASPIRIN
     Dosage: 81.0 MG, DAILY
     Route: 065
  2. IBUPROFEN. [Concomitant]
     Active Substance: IBUPROFEN
     Dosage: 600.0 MG, UNK
     Route: 065
  3. METHOTREXATE SODIUM. [Suspect]
     Active Substance: METHOTREXATE SODIUM
     Indication: RHEUMATOID ARTHRITIS
     Dosage: UNK
     Route: 048
  4. FOLIC ACID. [Concomitant]
     Active Substance: FOLIC ACID
     Dosage: 1.0 MG, DAILY
     Route: 065
  5. LANSOPRAZOLE. [Concomitant]
     Active Substance: LANSOPRAZOLE
     Dosage: 30.0 MG, DAILY
     Route: 065
  6. ADVAIR HFA [Concomitant]
     Active Substance: FLUTICASONE PROPIONATE\SALMETEROL XINAFOATE
     Dosage: UNK UNK, 2X/DAY
     Route: 065
  7. LIDOCAINE. [Concomitant]
     Active Substance: LIDOCAINE
     Dosage: UNK
     Route: 065
  8. ACTEMRA [Suspect]
     Active Substance: TOCILIZUMAB
     Dosage: 4.0 MG/KG, UNK
     Route: 042
  9. NEXIUM [Concomitant]
     Active Substance: ESOMEPRAZOLE MAGNESIUM
     Dosage: 40.0 MG, DAILY
     Route: 065
  10. TYLENOL [Concomitant]
     Active Substance: ACETAMINOPHEN
     Dosage: UNK
     Route: 065
  11. METHOTREXATE SODIUM. [Suspect]
     Active Substance: METHOTREXATE SODIUM
     Indication: RHEUMATOID ARTHRITIS
     Dosage: 2.5 MG, WEEKLY
     Route: 048
  12. ACTEMRA [Suspect]
     Active Substance: TOCILIZUMAB
     Indication: PRODUCT USED FOR UNKNOWN INDICATION
     Dosage: 388.0 MG, 1 EVERY 4 WEEKS
     Route: 042
  13. ENBREL [Concomitant]
     Active Substance: ETANERCEPT
     Dosage: 50.0 MG, WEEKLY
  14. ACTEMRA [Suspect]
     Active Substance: TOCILIZUMAB
     Indication: PRODUCT USED FOR UNKNOWN INDICATION
     Dosage: 740.0 MG, 1 EVERY 4 WEEKS
     Route: 042
  15. ARAVA [Concomitant]
     Active Substance: LEFLUNOMIDE
     Dosage: 20.0 MG, DAILY
     Route: 065

REACTIONS (17)
  - Joint swelling [Unknown]
  - Swelling [Unknown]
  - Arthralgia [Unknown]
  - Leukopenia [Unknown]
  - Musculoskeletal stiffness [Unknown]
  - Therapeutic product effect decreased [Unknown]
  - Joint effusion [Unknown]
  - Pain [Unknown]
  - Rheumatoid arthritis [Unknown]
  - Neutropenia [Unknown]
  - Synovitis [Unknown]
  - Peripheral swelling [Unknown]
  - Rotator cuff syndrome [Unknown]
  - Anti-cyclic citrullinated peptide antibody positive [Unknown]
  - C-reactive protein increased [Unknown]
  - Chronic obstructive pulmonary disease [Unknown]
  - Fatigue [Unknown]
